FAERS Safety Report 13762683 (Version 2)
Quarter: 2017Q3

REPORT INFORMATION
  Report Type: Report from Study
  Country: BR (occurrence: BR)
  Receive Date: 20170718
  Receipt Date: 20170802
  Transmission Date: 20171127
  Serious: Yes (Other)
  Sender: FDA-Public Use
  Company Number: PHHY2017BR103862

PATIENT
  Sex: Female
  Weight: 76 kg

DRUGS (2)
  1. SANDOSTATIN LAR DEPOT [Suspect]
     Active Substance: OCTREOTIDE ACETATE
     Indication: ACROMEGALY
     Dosage: 30 MG, UNK
     Route: 030
  2. PROFENID [Concomitant]
     Active Substance: KETOPROFEN
     Indication: DIABETES MELLITUS
     Route: 065

REACTIONS (5)
  - Malaise [Unknown]
  - Fall [Unknown]
  - Accident [Recovering/Resolving]
  - Rib fracture [Recovering/Resolving]
  - Joint injury [Unknown]
